FAERS Safety Report 8796697 (Version 1)
Quarter: 2012Q4

REPORT INFORMATION
  Report Type: 
  Country: US (occurrence: US)
  Receive Date: 20120917
  Receipt Date: 20120917
  Transmission Date: 20130627
  Serious: No
  Sender: FDA-Public Use
  Company Number: US-ABBOTT-11P-163-0868344-00

PATIENT
  Sex: Male
  Weight: 23.61 kg

DRUGS (1)
  1. DEPAKOTE SPRINKLES [Suspect]
     Indication: CONVULSION PROPHYLAXIS
     Dates: start: 201101

REACTIONS (6)
  - Psychomotor hyperactivity [Not Recovered/Not Resolved]
  - Distractibility [Not Recovered/Not Resolved]
  - Impulsive behaviour [Not Recovered/Not Resolved]
  - Disturbance in attention [Not Recovered/Not Resolved]
  - Asocial behaviour [Not Recovered/Not Resolved]
  - Increased appetite [Not Recovered/Not Resolved]
